FAERS Safety Report 23998728 (Version 1)
Quarter: 2024Q2

REPORT INFORMATION
  Report Type: Report from Study
  Country: US (occurrence: None)
  Receive Date: 20240621
  Receipt Date: 20240621
  Transmission Date: 20240716
  Serious: Yes (Other)
  Sender: FDA-Public Use
  Company Number: 2024A139886

PATIENT
  Sex: Female
  Weight: 65 kg

DRUGS (1)
  1. CALQUENCE [Suspect]
     Active Substance: ACALABRUTINIB
     Indication: Osteoarthritis
     Route: 048
     Dates: start: 20240521

REACTIONS (4)
  - White blood cell count increased [Unknown]
  - Headache [Unknown]
  - Red blood cell macrocytes present [Unknown]
  - Polychromasia [Unknown]
